FAERS Safety Report 8543407-3 (Version None)
Quarter: 2012Q3

REPORT INFORMATION
  Report Type: 
  Country: None (occurrence: None)
  Receive Date: 20120727
  Receipt Date: 20120720
  Transmission Date: 20120928
  Serious: Yes (Disabling)
  Sender: FDA-Public Use
  Company Number: PHEH2012US013113

PATIENT
  Sex: Female
  Weight: 87 kg

DRUGS (3)
  1. MULTI-VITAMINS [Concomitant]
     Indication: MEDICAL DIET
     Dosage: 1 DF, ONCE A DAY
     Route: 048
  2. VITAMIN D [Concomitant]
     Indication: MEDICAL DIET
     Dosage: 1000 U, QD
     Route: 048
  3. DIOVAN [Suspect]
     Indication: BLOOD PRESSURE
     Dosage: 160 MG, QD
     Route: 048
     Dates: end: 20120101

REACTIONS (5)
  - TINNITUS [None]
  - BLOOD PRESSURE INADEQUATELY CONTROLLED [None]
  - URINE OUTPUT DECREASED [None]
  - DIZZINESS [None]
  - HEART RATE INCREASED [None]
